FAERS Safety Report 9391819 (Version 2)
Quarter: 2013Q3

REPORT INFORMATION
  Report Type: Report from Study
  Country: ES (occurrence: ES)
  Receive Date: 20130709
  Receipt Date: 20130807
  Transmission Date: 20140515
  Serious: Yes (Death)
  Sender: FDA-Public Use
  Company Number: ES-BRISTOL-MYERS SQUIBB COMPANY-19064419

PATIENT
  Age: 72 Year
  Sex: Female

DRUGS (7)
  1. PACLITAXEL [Suspect]
     Indication: BREAST CANCER
     Dosage: TEST DOSE PRIOR TO EVENT LL/JUN/2013
     Route: 042
     Dates: start: 20130212
  2. PERTUZUMAB [Suspect]
     Indication: BREAST CANCER
     Dosage: LAST DOSE PRIOR TO EVENT:28/MAY/2013:INFUSION SOLUTION
     Route: 042
     Dates: start: 20130212
  3. TRASTUZUMAB [Suspect]
     Indication: BREAST CANCER
     Dosage: LAST DOSE PRIOR TO EVENT:28/MAY/2013:8 MG/KG,6 MG/KG,L IN 3WK
     Route: 042
     Dates: start: 20130212
  4. ADIRO [Concomitant]
  5. STRONTIUM RANELATE [Concomitant]
     Dates: start: 20120913
  6. AIRTAL [Concomitant]
     Dates: start: 20130606
  7. MOXIFLOXACIN [Concomitant]
     Dates: start: 20130606, end: 20130613

REACTIONS (1)
  - Death [Fatal]
